FAERS Safety Report 11297734 (Version 1)
Quarter: 2015Q3

REPORT INFORMATION
  Report Type: Spontaneous
  Country: US (occurrence: US)
  Receive Date: 20150722
  Receipt Date: 20150722
  Transmission Date: 20151125
  Serious: No
  Sender: FDA-Public Use
  Company Number: US-ELI_LILLY_AND_COMPANY-US200908000005

PATIENT
  Age: 49 Year
  Sex: Female

DRUGS (3)
  1. THYROID THERAPY [Concomitant]
     Active Substance: UNSPECIFIED INGREDIENT
  2. OTHER HORMONES [Concomitant]
     Active Substance: UNSPECIFIED INGREDIENT
  3. HUMATROPE [Suspect]
     Active Substance: SOMATROPIN
     Dates: start: 1997, end: 20090626

REACTIONS (1)
  - Joint swelling [Recovered/Resolved]

NARRATIVE: CASE EVENT DATE: 200906
